FAERS Safety Report 5032165-5 (Version None)
Quarter: 2006Q2

REPORT INFORMATION
  Report Type: 
  Country: None (occurrence: None)
  Receive Date: 20060616
  Receipt Date: 20060607
  Transmission Date: 20061013
  Serious: Yes (Life-Threatening, Hospitalization, Congenital Anomaly, Other)
  Sender: FDA-Public Use
  Company Number: 2006BL003104

PATIENT
  Sex: Female

DRUGS (3)
  1. VIVIDRIN NASENSPRAY GEGEN HEUSCHNUPFEN (KONSERVIERT)  (CROMOGLICATE SO [Suspect]
     Indication: RHINITIS
     Dosage: 1 APPLICATION; TWICE A DAY; TRANSPLACENTAL
     Route: 064
     Dates: start: 20050801
  2. XYLOMETAZOLINE (XYLOMETAZOLINE) [Suspect]
     Indication: RHINITIS
     Dosage: 1 APPLICATION; DAILY; TRANSPLACENTAL
     Route: 064
     Dates: start: 20051101
  3. HYDROCORTISONE [Suspect]
     Indication: ECZEMA
     Dosage: 1 APPLICATION; TWICE A DAY; TRANSPLACENTAL
     Route: 064
     Dates: start: 20050601

REACTIONS (4)
  - BICUSPID AORTIC VALVE [None]
  - COARCTATION OF THE AORTA [None]
  - CONGENITAL ANOMALY [None]
  - DRUG EXPOSURE DURING PREGNANCY [None]
